FAERS Safety Report 20730806 (Version 1)
Quarter: 2022Q2

REPORT INFORMATION
  Report Type: Spontaneous
  Country: US (occurrence: US)
  Receive Date: 20220420
  Receipt Date: 20220420
  Transmission Date: 20220721
  Serious: Yes (Other)
  Sender: FDA-Public Use
  Company Number: US-ASTELLAS-2021US018393

PATIENT
  Age: 59 Year
  Sex: Male

DRUGS (4)
  1. LEXISCAN [Suspect]
     Active Substance: REGADENOSON
     Indication: Cardiac stress test
     Dosage: 0.4MG/5ML, UNKNOWN FREQ.
     Route: 065
     Dates: start: 20210504, end: 20210504
  2. LEXISCAN [Suspect]
     Active Substance: REGADENOSON
     Indication: Cardiac stress test
     Dosage: 0.4MG/5ML, UNKNOWN FREQ.
     Route: 065
     Dates: start: 20210504, end: 20210504
  3. LEXISCAN [Suspect]
     Active Substance: REGADENOSON
     Indication: Cardiac stress test
     Dosage: 0.4MG/5ML, UNKNOWN FREQ.
     Route: 065
     Dates: start: 20210504, end: 20210504
  4. LEXISCAN [Suspect]
     Active Substance: REGADENOSON
     Indication: Cardiac stress test
     Dosage: 0.4MG/5ML, UNKNOWN FREQ.
     Route: 065
     Dates: start: 20210504, end: 20210504

REACTIONS (3)
  - Atrioventricular block [Recovered/Resolved]
  - Heart rate decreased [Recovered/Resolved]
  - Chest discomfort [Recovered/Resolved]

NARRATIVE: CASE EVENT DATE: 20210504
